FAERS Safety Report 23320592 (Version 1)
Quarter: 2023Q4

REPORT INFORMATION
  Report Type: Spontaneous
  Country: JP (occurrence: JP)
  Receive Date: 20231220
  Receipt Date: 20231220
  Transmission Date: 20240110
  Serious: Yes (Other)
  Sender: FDA-Public Use
  Company Number: JP-PFIZER INC-PV202300201560

PATIENT
  Age: 8 Decade
  Sex: Male

DRUGS (5)
  1. AXITINIB [Suspect]
     Active Substance: AXITINIB
     Indication: Metastatic renal cell carcinoma
     Dosage: 6 MG
  2. AXITINIB [Suspect]
     Active Substance: AXITINIB
     Dosage: 4 MG
  3. AVELUMAB [Concomitant]
     Active Substance: AVELUMAB
     Indication: Metastatic renal cell carcinoma
  4. LOPERAMIDE [Concomitant]
     Active Substance: LOPERAMIDE
     Dosage: UNK, AS NEEDED
     Route: 048
  5. LOPERAMIDE [Concomitant]
     Active Substance: LOPERAMIDE
     Dosage: UNK, REGULAR
     Route: 048

REACTIONS (1)
  - Hepatic function abnormal [Recovered/Resolved]
